FAERS Safety Report 5139116-3 (Version None)
Quarter: 2006Q4

REPORT INFORMATION
  Report Type: 
  Country: None (occurrence: None)
  Receive Date: 20061030
  Receipt Date: 20060622
  Transmission Date: 20070319
  Serious: Yes (Other)
  Sender: FDA-Public Use
  Company Number: US-GLAXOSMITHKLINE-A0610033A

PATIENT
  Age: 75 Year
  Sex: Female

DRUGS (12)
  1. ADVAIR HFA [Suspect]
     Indication: DRUG USE FOR UNKNOWN INDICATION
     Dosage: 1PUFF TWICE PER DAY
     Route: 055
     Dates: start: 20050301
  2. VYTORIN [Concomitant]
  3. SINGULAIR [Concomitant]
  4. DIAZEPAM [Concomitant]
  5. TOPROL-XL [Concomitant]
  6. HYZAAR [Concomitant]
  7. FUROSEMIDE [Concomitant]
  8. ISOSORBIDE [Concomitant]
  9. NITROSTAT [Concomitant]
  10. CELEBREX [Concomitant]
  11. POTASSIUM CHLORIDE [Concomitant]
  12. FOLIC ACID [Concomitant]

REACTIONS (2)
  - DRUG INEFFECTIVE [None]
  - PHARMACEUTICAL PRODUCT COMPLAINT [None]
